FAERS Safety Report 25846846 (Version 1)
Quarter: 2025Q3

REPORT INFORMATION
  Report Type: Spontaneous
  Country: BR (occurrence: BR)
  Receive Date: 20250925
  Receipt Date: 20250925
  Transmission Date: 20251021
  Serious: Yes (Other)
  Sender: NOVO NORDISK
  Company Number: BR-NOVOPROD-1525613

PATIENT
  Age: 16 Year
  Sex: Male

DRUGS (2)
  1. NORDITROPIN [Suspect]
     Active Substance: SOMATROPIN
     Indication: Short stature
  2. ANASTROZOLE [Concomitant]
     Active Substance: ANASTROZOLE
     Indication: Short stature
     Dosage: 1 MG, QD

REACTIONS (1)
  - Tibia fracture [Recovered/Resolved]
